FAERS Safety Report 4408300-6 (Version None)
Quarter: 2004Q3

REPORT INFORMATION
  Report Type: 
  Country: None (occurrence: None)
  Receive Date: 20040722
  Receipt Date: 20040709
  Transmission Date: 20050211
  Serious: Yes (Hospitalization)
  Sender: FDA-Public Use
  Company Number: PERI00204002310

PATIENT
  Sex: Female

DRUGS (10)
  1. COVERSYL (PERINDOPRIL) [Suspect]
     Indication: ESSENTIAL HYPERTENSION
     Dosage: 4 MG QD PO
     Route: 048
     Dates: start: 20031125, end: 20031209
  2. LITHIUM CARBONATE [Suspect]
     Indication: ILL-DEFINED DISORDER
     Dosage: 250 MG DAILY PO
     Route: 048
  3. FUROSEMIDE [Concomitant]
     Indication: ESSENTIAL HYPERTENSION
     Dosage: 20 MG DAILY PO
     Route: 048
     Dates: start: 20031125, end: 20031209
  4. LIPIDEX (SIMVASTATIN) [Concomitant]
  5. LOSEC (OMEPRAZOLE) [Concomitant]
  6. ASTRIX (ACETYLSALICYLIC ACID) [Concomitant]
  7. NEULACTIL (PERICIAZINE) [Concomitant]
  8. ZOLOFT [Concomitant]
  9. ISOSORBIDE (ISOSORBIDE) [Concomitant]
  10. ATENOLOL [Concomitant]

REACTIONS (7)
  - ABDOMINAL PAIN UPPER [None]
  - ANOREXIA [None]
  - BLOOD CREATININE INCREASED [None]
  - DEHYDRATION [None]
  - LETHARGY [None]
  - THERAPEUTIC AGENT TOXICITY [None]
  - VOMITING [None]
